FAERS Safety Report 21494385 (Version 1)
Quarter: 2022Q4

REPORT INFORMATION
  Report Type: Spontaneous
  Country: BR (occurrence: BR)
  Receive Date: 20221021
  Receipt Date: 20221021
  Transmission Date: 20230112
  Serious: Yes (Death, Other)
  Sender: FDA-Public Use
  Company Number: BR-BoehringerIngelheim-2022-BI-198638

PATIENT
  Age: 79 Year
  Sex: Female

DRUGS (2)
  1. CLONIDINE [Suspect]
     Active Substance: CLONIDINE
     Indication: Hypertension
     Dosage: (6 OR 7 TABLETS (1,200-1,400MG) DAILY)
     Route: 048
     Dates: start: 2002, end: 2018
  2. ATENOLOL [Concomitant]
     Active Substance: ATENOLOL
     Indication: Hypertension

REACTIONS (3)
  - Death [Fatal]
  - Overdose [Fatal]
  - Product availability issue [Fatal]

NARRATIVE: CASE EVENT DATE: 20180101
